FAERS Safety Report 5133503-5 (Version None)
Quarter: 2006Q4

REPORT INFORMATION
  Report Type: 
  Country: None (occurrence: None)
  Receive Date: 20061024
  Receipt Date: 20061004
  Transmission Date: 20070319
  Serious: Yes (Hospitalization)
  Sender: FDA-Public Use
  Company Number: PHBS2006JP15515

PATIENT
  Age: 32 Year
  Sex: Male

DRUGS (2)
  1. VOLTAREN [Suspect]
     Indication: PYREXIA
     Dosage: 50 MG/DAY
     Route: 054
     Dates: start: 20050617
  2. BUFFERIN [Suspect]
     Indication: PYREXIA
     Dosage: 1 TAB/DAY
     Route: 048

REACTIONS (5)
  - BRAIN OEDEMA [None]
  - HEPATIC FUNCTION ABNORMAL [None]
  - RESTLESSNESS [None]
  - REYE'S SYNDROME [None]
  - STATUS EPILEPTICUS [None]
